FAERS Safety Report 19183866 (Version 1)
Quarter: 2021Q2

REPORT INFORMATION
  Report Type: Spontaneous
  Country: US (occurrence: US)
  Receive Date: 20210427
  Receipt Date: 20210427
  Transmission Date: 20210717
  Serious: No
  Sender: FDA-Public Use
  Company Number: US-BAYER-2021-125731

PATIENT
  Sex: Female

DRUGS (1)
  1. MIRALAX [Suspect]
     Active Substance: POLYETHYLENE GLYCOL 3350
     Dosage: UNK
     Route: 048
     Dates: start: 20210411, end: 20210411

REACTIONS (3)
  - Faeces hard [Unknown]
  - Faecal volume decreased [Unknown]
  - Faeces soft [Unknown]

NARRATIVE: CASE EVENT DATE: 20210411
